FAERS Safety Report 7946759-8 (Version None)
Quarter: 2011Q4

REPORT INFORMATION
  Report Type: 
  Country: None (occurrence: None)
  Receive Date: 20111125
  Receipt Date: 20111115
  Transmission Date: 20120403
  Serious: Yes (Hospitalization, Other)
  Sender: FDA-Public Use
  Company Number: VAL_00654_2011

PATIENT
  Age: 13 Year
  Sex: Female

DRUGS (1)
  1. CARBAMAZEPINE [Suspect]
     Indication: PRODUCT USED FOR UNKNOWN INDICATION
     Dosage: (TALEN AT LEAST 12 TABLETS (400MG) ORAL)
     Route: 048

REACTIONS (6)
  - RESPIRATORY RATE INCREASED [None]
  - OVERDOSE [None]
  - BLOOD PRESSURE DIASTOLIC DECREASED [None]
  - EXTENSOR PLANTAR RESPONSE [None]
  - LOSS OF CONSCIOUSNESS [None]
  - BODY TEMPERATURE DECREASED [None]
